FAERS Safety Report 16235145 (Version 1)
Quarter: 2019Q2

REPORT INFORMATION
  Report Type: Spontaneous
  Country: IT (occurrence: IT)
  Receive Date: 20190424
  Receipt Date: 20190424
  Transmission Date: 20190711
  Serious: Yes (Life-Threatening, Hospitalization)
  Sender: FDA-Public Use
  Company Number: IT-MYLANLABS-2019M1037354

PATIENT
  Age: 70 Year
  Sex: Male

DRUGS (1)
  1. MESALAZINE [Suspect]
     Active Substance: MESALAMINE
     Indication: COLITIS ULCERATIVE
     Dosage: UNK
     Route: 065

REACTIONS (5)
  - Drug ineffective [Unknown]
  - Cardiac ventricular thrombosis [Recovered/Resolved]
  - Haemoglobin decreased [Recovered/Resolved]
  - Acute myocardial infarction [Recovered/Resolved]
  - Vascular stent thrombosis [Recovered/Resolved]
